FAERS Safety Report 10609202 (Version 2)
Quarter: 2015Q1

REPORT INFORMATION
  Report Type: Spontaneous
  Country: US (occurrence: US)
  Receive Date: 20141126
  Receipt Date: 20150113
  Transmission Date: 20150720
  Serious: No
  Sender: FDA-Public Use
  Company Number: US-009507513-1411USA007480

PATIENT
  Sex: Female

DRUGS (1)
  1. NEXPLANON [Suspect]
     Active Substance: ETONOGESTREL
     Indication: MENOMETRORRHAGIA
     Dosage: 68 MG/ ONE ROD, INSERTED EVERY THREE YEARS
     Route: 059

REACTIONS (3)
  - Drug ineffective for unapproved indication [Unknown]
  - No adverse event [Unknown]
  - Off label use [Unknown]
